FAERS Safety Report 14988049 (Version 1)
Quarter: 2018Q2

REPORT INFORMATION
  Report Type: Spontaneous
  Country: US (occurrence: US)
  Receive Date: 20180608
  Receipt Date: 20180608
  Transmission Date: 20180711
  Serious: Yes (Hospitalization)
  Sender: FDA-Public Use
  Company Number: US-JNJFOC-20180604288

PATIENT
  Age: 51 Year
  Sex: Male
  Weight: 104 kg

DRUGS (1)
  1. INVOKANA [Suspect]
     Active Substance: CANAGLIFLOZIN
     Indication: TYPE 2 DIABETES MELLITUS
     Dosage: 90 QUALNTITY
     Route: 048
     Dates: start: 20160126, end: 20180212

REACTIONS (3)
  - Limb amputation [Recovering/Resolving]
  - Gangrene [Unknown]
  - Diabetic foot infection [Unknown]

NARRATIVE: CASE EVENT DATE: 201605
